FAERS Safety Report 12491465 (Version 2)
Quarter: 2016Q4

REPORT INFORMATION
  Report Type: Report from Study
  Country: IL (occurrence: IL)
  Receive Date: 20160623
  Receipt Date: 20161225
  Transmission Date: 20170207
  Serious: Yes (Death, Other)
  Sender: FDA-Public Use
  Company Number: IL-ROCHE-1781258

PATIENT

DRUGS (3)
  1. OMBITASVIR/PARITAPREVIR/RITONAVIR [Suspect]
     Active Substance: OMBITASVIR\PARITAPREVIR\RITONAVIR
     Indication: HEPATITIS C
     Route: 065
  2. DASABUVIR [Suspect]
     Active Substance: DASABUVIR
     Indication: HEPATITIS C
     Route: 065
  3. RIBAVIRIN. [Suspect]
     Active Substance: RIBAVIRIN
     Indication: HEPATITIS C
     Route: 065

REACTIONS (4)
  - Anaemia [Unknown]
  - Infection [Unknown]
  - Multiple organ dysfunction syndrome [Fatal]
  - Hepatic failure [Unknown]
